FAERS Safety Report 19256805 (Version 1)
Quarter: 2021Q2

REPORT INFORMATION
  Report Type: Spontaneous
  Country: US (occurrence: US)
  Receive Date: 20210513
  Receipt Date: 20210513
  Transmission Date: 20210717
  Serious: No
  Sender: FDA-Public Use
  Company Number: US-PFIZER INC-2021223747

PATIENT
  Age: 47 Year
  Sex: Female
  Weight: 52.62 kg

DRUGS (1)
  1. PENICILLIN G BENZATHINE/PENICILLIN G PROCAINE [Suspect]
     Active Substance: PENICILLIN G BENZATHINE\PENICILLIN G PROCAINE
     Dosage: UNK

REACTIONS (4)
  - Illness [Unknown]
  - Injection site mass [Unknown]
  - Pain [Unknown]
  - Condition aggravated [Unknown]
